FAERS Safety Report 14967209 (Version 1)
Quarter: 2018Q2

REPORT INFORMATION
  Report Type: Spontaneous
  Country: IN (occurrence: IN)
  Receive Date: 20180604
  Receipt Date: 20180604
  Transmission Date: 20180711
  Serious: Yes (Death)
  Sender: FDA-Public Use
  Company Number: IN-CHEPLA-C20170692_B

PATIENT
  Age: 52 Year
  Sex: Female

DRUGS (5)
  1. ATRA [Suspect]
     Active Substance: TRETINOIN
     Indication: ACUTE PROMYELOCYTIC LEUKAEMIA
     Dosage: 45 MG/MM2 (DAY 1 UNTIL DAY 16; DAY 25 UNTIL DAY 28)
     Route: 065
  2. DEXAMETHASONE. [Suspect]
     Active Substance: DEXAMETHASONE
     Dosage: DAY 15 UNTIL DAY 28
     Route: 065
  3. ATO (ARSENIC TRIOXIDE) [Suspect]
     Active Substance: ARSENIC TRIOXIDE
     Indication: ACUTE PROMYELOCYTIC LEUKAEMIA
     Dosage: 0.15 MG/KG (DAY 5 UNTIL DAY 16)
     Route: 065
  4. PREDNISOLONE. [Suspect]
     Active Substance: PREDNISOLONE
     Dosage: DAY 1 UNTIL DAY 14
     Route: 065
  5. HYDROXYUREA. [Suspect]
     Active Substance: HYDROXYUREA
     Dosage: 1 G/DAY (DAY 15 UNTIL DAY 18)
     Route: 065

REACTIONS (5)
  - Respiratory failure [None]
  - Pyrexia [Recovered/Resolved]
  - Acute promyelocytic leukaemia differentiation syndrome [None]
  - Acute promyelocytic leukaemia differentiation syndrome [Fatal]
  - Arrhythmia [None]
